FAERS Safety Report 8116570-6 (Version None)
Quarter: 2012Q1

REPORT INFORMATION
  Report Type: 
  Country: None (occurrence: None)
  Receive Date: 20120206
  Receipt Date: 20120130
  Transmission Date: 20120608
  Serious: Yes (Hospitalization)
  Sender: FDA-Public Use
  Company Number: GB-AMGEN-GBRCT2011045940

PATIENT
  Age: 59 Year
  Sex: Male
  Weight: 118.2 kg

DRUGS (9)
  1. METOCLOPRAMIDE [Concomitant]
     Indication: NAUSEA
     Route: 048
     Dates: start: 20110812, end: 20111012
  2. PANITUMUMAB [Suspect]
     Indication: COLORECTAL CANCER
     Dosage: ADVERSE EVENT
     Dates: start: 20110720
  3. RAMIPRIL [Concomitant]
     Indication: HYPERTENSION
     Dosage: UNK
     Route: 048
     Dates: start: 20060615
  4. LYMECYCLINE [Concomitant]
     Indication: RASH
     Dosage: UNK
     Route: 048
     Dates: start: 20110720, end: 20110926
  5. HYDROCORTISONE [Concomitant]
     Indication: RASH
     Dosage: UNK
     Route: 061
     Dates: start: 20110720, end: 20110926
  6. DIPROBASE [Concomitant]
     Indication: DRY SKIN
     Route: 061
     Dates: start: 20110720
  7. SPIRONOLACTONE [Concomitant]
     Dosage: UNK
     Route: 048
     Dates: start: 20110802, end: 20110830
  8. CETIRIZINE HYDROCHORIDE [Concomitant]
     Indication: SEASONAL ALLERGY
     Dosage: UNK
     Route: 048
     Dates: start: 19610615, end: 20110730
  9. FINASTERIDE [Concomitant]
     Indication: BENIGN PROSTATIC HYPERPLASIA
     Dosage: UNK
     Route: 048
     Dates: start: 20101215

REACTIONS (4)
  - HYPERKALAEMIA [None]
  - HYPONATRAEMIA [None]
  - HYPOMAGNESAEMIA [None]
  - ELECTROLYTE IMBALANCE [None]
